FAERS Safety Report 23677241 (Version 1)
Quarter: 2024Q1

REPORT INFORMATION
  Report Type: Spontaneous
  Country: US (occurrence: None)
  Receive Date: 20240326
  Receipt Date: 20240326
  Transmission Date: 20240410
  Serious: Yes (Disabling)
  Sender: FDA-Public Use
  Company Number: None

PATIENT
  Age: 30 Year
  Sex: Female
  Weight: 56.7 kg

DRUGS (5)
  1. CIPROFLOXACIN HYDROCHLORIDE [Suspect]
     Active Substance: CIPROFLOXACIN HYDROCHLORIDE
     Indication: Urinary tract infection bacterial
     Dosage: FREQUENCY : DAILY;?
     Route: 048
     Dates: start: 20230803, end: 20230805
  2. MAGNESIUM GLYCINATE [Concomitant]
     Active Substance: MAGNESIUM GLYCINATE
  3. B1 Benfotiamine [Concomitant]
  4. D-Mannose/Cranberry [Concomitant]
  5. Vitamin D3/K2 [Concomitant]

REACTIONS (35)
  - Tachycardia [None]
  - Dizziness [None]
  - Chest pain [None]
  - Seizure like phenomena [None]
  - Autonomic nervous system imbalance [None]
  - Abdominal pain [None]
  - Chronic fatigue syndrome [None]
  - Abdominal distension [None]
  - Malaise [None]
  - Insomnia [None]
  - Headache [None]
  - Neuropathy peripheral [None]
  - Ehlers-Danlos syndrome [None]
  - Yawning [None]
  - Clumsiness [None]
  - Seizure [None]
  - Tremor [None]
  - Micturition urgency [None]
  - Bladder disorder [None]
  - Dysuria [None]
  - Speech disorder [None]
  - Cognitive disorder [None]
  - Temperature intolerance [None]
  - Brain fog [None]
  - Disturbance in attention [None]
  - Temperature intolerance [None]
  - Temperature regulation disorder [None]
  - Nasal dryness [None]
  - Groin pain [None]
  - Tubulointerstitial nephritis [None]
  - Hypoaesthesia [None]
  - Joint stiffness [None]
  - Formication [None]
  - Arthralgia [None]
  - Electric shock sensation [None]

NARRATIVE: CASE EVENT DATE: 20230803
